FAERS Safety Report 6735062-X (Version None)
Quarter: 2010Q2

REPORT INFORMATION
  Report Type: 
  Country: None (occurrence: None)
  Receive Date: 20100521
  Receipt Date: 20100310
  Transmission Date: 20101027
  Serious: Yes (Hospitalization)
  Sender: FDA-Public Use
  Company Number: FR-JNJFOC-20100507453

PATIENT
  Age: 34 Year
  Sex: Male

DRUGS (4)
  1. IXPRIM [Suspect]
     Indication: BACK PAIN
     Route: 048
  2. MYOLASTAN [Suspect]
     Indication: BACK PAIN
     Route: 048
  3. ARTOTEC [Concomitant]
     Route: 065
  4. RANITIDINE HCL [Concomitant]
     Route: 065

REACTIONS (6)
  - AGGRESSION [None]
  - DISORIENTATION [None]
  - DRUG ABUSE [None]
  - FALL [None]
  - SPEECH DISORDER [None]
  - VERTIGO [None]
